FAERS Safety Report 16650867 (Version 1)
Quarter: 2019Q3

REPORT INFORMATION
  Report Type: Spontaneous
  Country: FR (occurrence: FR)
  Receive Date: 20190731
  Receipt Date: 20190731
  Transmission Date: 20191004
  Serious: Yes (Hospitalization)
  Sender: FDA-Public Use
  Company Number: FR-ROCHE-2363821

PATIENT
  Age: 44 Year
  Sex: Male

DRUGS (3)
  1. PARKINANE LP [Suspect]
     Active Substance: TRIHEXYPHENIDYL HYDROCHLORIDE
     Indication: SUICIDE ATTEMPT
     Route: 048
     Dates: start: 20180820, end: 20180820
  2. TERCIAN [CYAMEMAZINE] [Suspect]
     Active Substance: CYAMEMAZINE
     Indication: SUICIDE ATTEMPT
     Route: 048
     Dates: start: 20180820, end: 20180820
  3. VALIUM [Suspect]
     Active Substance: DIAZEPAM
     Indication: SUICIDE ATTEMPT
     Route: 048
     Dates: start: 20180820, end: 20180820

REACTIONS (8)
  - Bradyphrenia [Recovered/Resolved]
  - Somnolence [Recovered/Resolved]
  - Agitation [Recovered/Resolved]
  - Toxicity to various agents [Recovered/Resolved]
  - Incoherent [Recovered/Resolved]
  - Disorientation [Recovered/Resolved]
  - Confusional state [Recovered/Resolved]
  - Mental impairment [Recovered/Resolved]

NARRATIVE: CASE EVENT DATE: 20180820
